FAERS Safety Report 15376231 (Version 1)
Quarter: 2018Q3

REPORT INFORMATION
  Report Type: Spontaneous
  Country: US (occurrence: US)
  Receive Date: 20180912
  Receipt Date: 20180912
  Transmission Date: 20181010
  Serious: No
  Sender: FDA-Public Use
  Company Number: US-TEVA-2018-US-951913

PATIENT
  Sex: Female

DRUGS (2)
  1. CLONAZTAB [Suspect]
     Active Substance: CLONAZEPAM
     Indication: ANXIETY
  2. CLONAZTAB [Suspect]
     Active Substance: CLONAZEPAM
     Indication: PANIC DISORDER
     Route: 065
     Dates: start: 201709, end: 201808

REACTIONS (4)
  - Anxiety [Unknown]
  - Product substitution issue [Unknown]
  - Panic attack [Unknown]
  - Drug ineffective [Unknown]

NARRATIVE: CASE EVENT DATE: 201808
